FAERS Safety Report 6696322-4 (Version None)
Quarter: 2010Q2

REPORT INFORMATION
  Report Type: 
  Country: None (occurrence: None)
  Receive Date: 20100426
  Receipt Date: 20100421
  Transmission Date: 20101027
  Serious: Yes (Congenital Anomaly, Other)
  Sender: FDA-Public Use
  Company Number: US-TEVA-231760USA

PATIENT

DRUGS (1)
  1. CLARAVIS [Suspect]
     Route: 064
     Dates: start: 20091015, end: 20100222

REACTIONS (2)
  - BRADYCARDIA FOETAL [None]
  - FOETAL GROWTH RETARDATION [None]
